FAERS Safety Report 10024116 (Version 2)
Quarter: 2014Q1

REPORT INFORMATION
  Report Type: Spontaneous
  Country: ES (occurrence: ES)
  Receive Date: 20140320
  Receipt Date: 20140327
  Transmission Date: 20141002
  Serious: Yes (Other)
  Sender: FDA-Public Use
  Company Number: ES-BAYER-2014-041361

PATIENT
  Age: 38 Year
  Sex: Female

DRUGS (2)
  1. MIRENA [Suspect]
     Indication: MENORRHAGIA
     Dosage: 20 MCG/24HR, CONT
     Route: 015
     Dates: start: 2007, end: 2013
  2. MIRENA [Suspect]
     Indication: MENORRHAGIA
     Dosage: DAILY DOSE 20 ?G
     Route: 015
     Dates: start: 2013, end: 201402

REACTIONS (3)
  - Endometrial adenocarcinoma [None]
  - Vaginal haemorrhage [None]
  - Device misuse [None]
